FAERS Safety Report 8135780-5 (Version None)
Quarter: 2012Q1

REPORT INFORMATION
  Report Type: 
  Country: None (occurrence: None)
  Receive Date: 20120103
  Receipt Date: 20111104
  Transmission Date: 20120608
  Serious: No
  Sender: FDA-Public Use
  Company Number: AE-2011-003082

PATIENT
  Age: 51 Year
  Sex: Male
  Weight: 88.4514 kg

DRUGS (4)
  1. RIBAVIRIN [Concomitant]
  2. PEGASYS [Concomitant]
  3. OXYCONTIN (OXYCDONE HYDROCHLORIDE) [Concomitant]
  4. INCIVEK [Suspect]
     Dosage: 2250 MG (750 MG, 1 IN 8 HR),ORAL
     Route: 048
     Dates: start: 20110914, end: 20111103

REACTIONS (2)
  - DRUG DOSE OMISSION [None]
  - DRUG INEFFECTIVE [None]
